FAERS Safety Report 6807932-5 (Version None)
Quarter: 2010Q2

REPORT INFORMATION
  Report Type: 
  Country: None (occurrence: None)
  Receive Date: 20100629
  Receipt Date: 20090604
  Transmission Date: 20101027
  Serious: Yes (Other)
  Sender: FDA-Public Use
  Company Number: US-PFIZER INC-2009169630

PATIENT
  Age: 37 Year
  Sex: Male

DRUGS (4)
  1. XANAX [Suspect]
     Indication: ANXIETY
     Dosage: UNK
  2. XANAX [Suspect]
     Indication: NAUSEA
  3. PAXIL [Concomitant]
  4. OTHER ANTIHYPERTENSIVES [Concomitant]

REACTIONS (5)
  - DEPENDENCE [None]
  - FEELING DRUNK [None]
  - INTENTIONAL DRUG MISUSE [None]
  - POOR PERSONAL HYGIENE [None]
  - VOMITING [None]
